FAERS Safety Report 5630284-3 (Version None)
Quarter: 2008Q1

REPORT INFORMATION
  Report Type: 
  Country: None (occurrence: None)
  Receive Date: 20080219
  Receipt Date: 20071109
  Transmission Date: 20080703
  Serious: Yes (Other)
  Sender: FDA-Public Use
  Company Number: US-BAYER-200714458BWH

PATIENT
  Sex: Male

DRUGS (2)
  1. LEVITRA [Suspect]
     Indication: ERECTILE DYSFUNCTION
     Dosage: TOTAL DAILY DOSE: 10 MG  UNIT DOSE: 10 MG
     Route: 048
     Dates: start: 20071101
  2. LEVITRA [Suspect]
     Dosage: TOTAL DAILY DOSE: 30 MG  UNIT DOSE: 20 MG
     Route: 048
     Dates: start: 20071101

REACTIONS (1)
  - PRIAPISM [None]
